FAERS Safety Report 16190532 (Version 1)
Quarter: 2019Q2

REPORT INFORMATION
  Report Type: Spontaneous
  Country: GB (occurrence: GB)
  Receive Date: 20190412
  Receipt Date: 20190412
  Transmission Date: 20190711
  Serious: Yes (Other)
  Sender: FDA-Public Use
  Company Number: GB-PFIZER INC-2019150567

PATIENT
  Age: 64 Year
  Sex: Female

DRUGS (2)
  1. LIPITOR [Suspect]
     Active Substance: ATORVASTATIN CALCIUM
     Dosage: 20 MG, UNK
     Dates: start: 2006
  2. WARFARIN [Interacting]
     Active Substance: WARFARIN
     Indication: COAGULOPATHY
     Dosage: UNK

REACTIONS (2)
  - Drug interaction [Unknown]
  - Cerebral haemorrhage [Unknown]
